FAERS Safety Report 7435939-6 (Version None)
Quarter: 2011Q2

REPORT INFORMATION
  Report Type: 
  Country: None (occurrence: None)
  Receive Date: 20110425
  Receipt Date: 20110413
  Transmission Date: 20111010
  Serious: Yes (Other)
  Sender: FDA-Public Use
  Company Number: FR-PFIZER INC-2011080896

PATIENT
  Age: 6 Year
  Sex: Male
  Weight: 22 kg

DRUGS (1)
  1. ADVIL LIQUI-GELS [Suspect]
     Indication: ALLERGY TEST
     Dosage: UNK
     Route: 048
     Dates: start: 20101208, end: 20101208

REACTIONS (3)
  - DYSPNOEA [None]
  - CONJUNCTIVITIS [None]
  - URTICARIA [None]
